FAERS Safety Report 5305678-6 (Version None)
Quarter: 2007Q2

REPORT INFORMATION
  Report Type: 
  Country: None (occurrence: None)
  Receive Date: 20070424
  Receipt Date: 20070412
  Transmission Date: 20071010
  Serious: No
  Sender: FDA-Public Use
  Company Number: US-JNJFOC-20070402706

PATIENT
  Age: 25 Year
  Sex: Female

DRUGS (4)
  1. RISPERDAL [Suspect]
     Route: 048
  2. RISPERDAL [Suspect]
     Indication: BIPOLAR DISORDER
     Route: 048
  3. INVEGA [Suspect]
     Indication: BIPOLAR DISORDER
     Route: 048
  4. LAMICTAL [Concomitant]
     Route: 048

REACTIONS (5)
  - BLOOD PROLACTIN INCREASED [None]
  - FATIGUE [None]
  - MENSTRUATION IRREGULAR [None]
  - NAUSEA [None]
  - VOMITING [None]
